FAERS Safety Report 22098960 (Version 3)
Quarter: 2023Q2

REPORT INFORMATION
  Report Type: Spontaneous
  Country: JP (occurrence: JP)
  Receive Date: 20230315
  Receipt Date: 20230519
  Transmission Date: 20230721
  Serious: Yes (Death, Hospitalization, Other)
  Sender: FDA-Public Use
  Company Number: JP-DSJP-DSJ-2023-110038

PATIENT
  Age: 73 Year
  Sex: Female
  Weight: 42 kg

DRUGS (10)
  1. ENHERTU [Suspect]
     Active Substance: FAM-TRASTUZUMAB DERUXTECAN-NXKI
     Indication: Gastric cancer
     Dosage: 4.8 MG/KG, ONCE EVERY 3 WK
     Route: 041
     Dates: start: 20220707, end: 20220707
  2. ENHERTU [Suspect]
     Active Substance: FAM-TRASTUZUMAB DERUXTECAN-NXKI
     Dosage: 4.8 MG/KG, ONCE EVERY 3 WK
     Route: 041
     Dates: start: 20220803, end: 20220803
  3. ENHERTU [Suspect]
     Active Substance: FAM-TRASTUZUMAB DERUXTECAN-NXKI
     Dosage: 4.8 MG/KG, ONCE EVERY 3 WK
     Route: 041
     Dates: start: 20220826, end: 20220826
  4. ENHERTU [Suspect]
     Active Substance: FAM-TRASTUZUMAB DERUXTECAN-NXKI
     Dosage: 4.8 MG/KG, ONCE EVERY 3 WK
     Route: 041
     Dates: start: 20220916, end: 20220916
  5. ENHERTU [Suspect]
     Active Substance: FAM-TRASTUZUMAB DERUXTECAN-NXKI
     Dosage: 4.9 MG/KG, ONCE EVERY 3 WK
     Route: 041
     Dates: start: 20221007, end: 20221007
  6. ENHERTU [Suspect]
     Active Substance: FAM-TRASTUZUMAB DERUXTECAN-NXKI
     Dosage: 5 MG/KG, ONCE EVERY 3 WK
     Route: 041
     Dates: start: 20221104, end: 20221104
  7. ENHERTU [Suspect]
     Active Substance: FAM-TRASTUZUMAB DERUXTECAN-NXKI
     Dosage: 5.1 MG/KG, ONCE EVERY 3 WK
     Route: 041
     Dates: start: 20221202, end: 20221202
  8. MAGNESIUM OXIDE [Concomitant]
     Active Substance: MAGNESIUM OXIDE
     Dosage: 330 MG, TID
     Route: 048
     Dates: end: 20221208
  9. URSODIOL [Concomitant]
     Active Substance: URSODIOL
     Dosage: 100 MG, TID
     Route: 048
     Dates: end: 20221208
  10. ANAMORELIN HYDROCHLORIDE [Concomitant]
     Active Substance: ANAMORELIN HYDROCHLORIDE
     Dosage: 100 MG, QD
     Route: 048
     Dates: start: 20220712, end: 20220730

REACTIONS (7)
  - Disseminated intravascular coagulation [Fatal]
  - Cholangitis infective [Fatal]
  - Septic shock [Fatal]
  - Myelosuppression [Unknown]
  - Hepatic function abnormal [Unknown]
  - Influenza [Unknown]
  - Underdose [Unknown]

NARRATIVE: CASE EVENT DATE: 20220707
